FAERS Safety Report 16999314 (Version 1)
Quarter: 2019Q4

REPORT INFORMATION
  Report Type: Spontaneous
  Country: US (occurrence: US)
  Receive Date: 20191105
  Receipt Date: 20191105
  Transmission Date: 20200122
  Serious: No
  Sender: FDA-Public Use
  Company Number: US-RADIUS HEALTH INC.-2019US003672

PATIENT
  Age: 75 Year
  Sex: Female

DRUGS (1)
  1. TYMLOS [Suspect]
     Active Substance: ABALOPARATIDE
     Indication: OSTEOPOROSIS POSTMENOPAUSAL
     Dosage: 80 MCG, DAILY
     Route: 058
     Dates: start: 20190927

REACTIONS (9)
  - Product dose omission [Recovered/Resolved]
  - Parosmia [Recovered/Resolved]
  - Feeling abnormal [Recovered/Resolved]
  - Autoscopy [Recovered/Resolved]
  - Wrong technique in product usage process [Recovered/Resolved]
  - Disturbance in attention [Recovered/Resolved]
  - Accidental overdose [Recovered/Resolved]
  - Confusional state [Recovered/Resolved]
  - Feeling hot [Recovered/Resolved]

NARRATIVE: CASE EVENT DATE: 20190928
